FAERS Safety Report 7508719-0 (Version None)
Quarter: 2011Q2

REPORT INFORMATION
  Report Type: 
  Country: None (occurrence: None)
  Receive Date: 20110527
  Receipt Date: 20100902
  Transmission Date: 20111010
  Serious: No
  Sender: FDA-Public Use
  Company Number: A0879958A

PATIENT
  Sex: Female

DRUGS (4)
  1. ANTIBIOTIC [Concomitant]
  2. PREDNISONE [Concomitant]
  3. VENTOLIN [Suspect]
     Indication: ASTHMA
     Route: 055
     Dates: start: 20100101
  4. SYMBICORT [Suspect]
     Indication: ASTHMA
     Route: 055
     Dates: start: 20100101

REACTIONS (4)
  - COUGH [None]
  - UPPER RESPIRATORY TRACT INFECTION [None]
  - RESPIRATORY TRACT INFECTION VIRAL [None]
  - LARYNGITIS [None]
